FAERS Safety Report 9398515 (Version 2)
Quarter: 2013Q3

REPORT INFORMATION
  Report Type: Report from Study
  Country: DE (occurrence: DE)
  Receive Date: 20130712
  Receipt Date: 20130902
  Transmission Date: 20140515
  Serious: Yes (Hospitalization)
  Sender: FDA-Public Use
  Company Number: PHHY2013DE073277

PATIENT
  Age: 69 Year
  Sex: Female

DRUGS (23)
  1. ICL670A [Suspect]
     Indication: MYELODYSPLASTIC SYNDROME
     Dosage: 4 DF (250 MG), QD
     Route: 048
     Dates: start: 20120104, end: 20121129
  2. ICL670A [Suspect]
     Dosage: 500 MG, BID
     Route: 048
     Dates: start: 20121129, end: 20121221
  3. ICL670A [Suspect]
     Dosage: 500 MG, QID
     Route: 048
     Dates: start: 20121221, end: 20130129
  4. ICL670A [Suspect]
     Dosage: 500 MG, BID
     Route: 048
     Dates: start: 20130209, end: 20130703
  5. XAGRID [Suspect]
     Indication: THROMBOCYTOSIS
     Dosage: 0.5 U, 3 TIMES A DAY
     Dates: start: 20121220
  6. THEOPHYLLINE [Concomitant]
     Dosage: 1 DF, QD
     Dates: start: 19950101
  7. LISINOPRIL [Concomitant]
     Dosage: 2 DF, QD
     Dates: start: 20000101
  8. TRIAMTERENE [Concomitant]
     Dosage: 1 DF, QD
     Dates: start: 20000101
  9. AEROSOL [Concomitant]
     Dosage: UNK UKN, UNK
     Dates: start: 19950101
  10. SALBUTAMOL [Concomitant]
     Dosage: UNK UKN, UNK
     Dates: start: 19950101
  11. SPIRIVA [Concomitant]
     Dosage: UNK UKN, ON DEMAND
     Dates: start: 19950101
  12. DICLOFENAC [Concomitant]
     Dosage: 1 DF, QD
     Dates: start: 20110408
  13. OMEPRAZOLE [Concomitant]
     Dosage: 40 MG, DAILY
     Dates: start: 20111221, end: 20120202
  14. MCP [Concomitant]
     Dosage: 30 DRP, 3 TIMES A DAY
     Dates: start: 20111221, end: 20120202
  15. METAMIZOLE [Concomitant]
     Dosage: UNK UKN, ON DEMAND
     Dates: start: 20130111
  16. CERUCAL [Concomitant]
     Dosage: UNK UKN, ON DEMAND
     Dates: start: 20130111
  17. MACROGOL [Concomitant]
     Dosage: UNK UKN, ON DEMAND
     Dates: start: 20130123
  18. VERAPAMIL [Concomitant]
     Indication: HYPERTENSION
     Dosage: 240 MG, DAILY
     Route: 048
  19. HYDROCHLOROTHIAZIDE [Concomitant]
     Indication: HYPERTENSION
     Dosage: 12.5 MG, DAILY
     Route: 048
  20. OPIPRAMOL [Concomitant]
     Dosage: 150 MG, DAILY
     Route: 048
  21. EUPHYLONG [Concomitant]
     Indication: ASTHMA
     Dosage: 375 MG, DAILY
     Route: 048
  22. PANTOPRAZOLE [Concomitant]
     Indication: GASTRIC DISORDER
     Dosage: 40 MG, DAILY
     Route: 048
  23. TRIARESE [Concomitant]
     Indication: HYPERTENSION
     Dosage: 25 MG, DAILY
     Route: 048

REACTIONS (1)
  - Asthenia [Recovered/Resolved]
